FAERS Safety Report 8185812-3 (Version None)
Quarter: 2012Q1

REPORT INFORMATION
  Report Type: 
  Country: None (occurrence: None)
  Receive Date: 20120305
  Receipt Date: 20120302
  Transmission Date: 20120608
  Serious: Yes (Hospitalization, Other)
  Sender: FDA-Public Use
  Company Number: BR-ABBOTT-12P-020-0910768-00

PATIENT
  Sex: Female

DRUGS (5)
  1. UNSPECIFIED MEDICATION [Concomitant]
     Indication: GASTROINTESTINAL DISORDER
  2. UNSPECIFIED MEDICATION [Concomitant]
     Indication: ANAEMIA
  3. UNSPECIFIED MEDICATION [Concomitant]
     Indication: HYPERTENSION
  4. HUMIRA [Suspect]
     Indication: RHEUMATOID ARTHRITIS
     Route: 058
     Dates: start: 20110127
  5. ALL OTHER THERAPEUTIC PRODUCTS [Suspect]
     Indication: ARTHRITIS

REACTIONS (4)
  - GASTRITIS [None]
  - ANAEMIA [None]
  - HAEMORRHOIDS [None]
  - RECTAL HAEMORRHAGE [None]
